FAERS Safety Report 17116993 (Version 4)
Quarter: 2020Q1

REPORT INFORMATION
  Report Type: Report from Study
  Country: CO (occurrence: CO)
  Receive Date: 20191205
  Receipt Date: 20200107
  Transmission Date: 20200409
  Serious: Yes (Life-Threatening, Hospitalization, Other)
  Sender: FDA-Public Use
  Company Number: PHHY2019CO116714

PATIENT
  Sex: Female
  Weight: 63 kg

DRUGS (2)
  1. REVOLADE [Suspect]
     Active Substance: ELTROMBOPAG
     Indication: THROMBOCYTOPENIC PURPURA
     Dosage: 50 MG, QD
     Route: 048
     Dates: start: 2012
  2. REVOLADE [Suspect]
     Active Substance: ELTROMBOPAG
     Dosage: 50 MG, QD
     Route: 048
     Dates: start: 20180301

REACTIONS (10)
  - Vaginal haemorrhage [Unknown]
  - Pain [Unknown]
  - Immune thrombocytopenic purpura [Unknown]
  - Haematuria [Unknown]
  - Disease recurrence [Unknown]
  - General physical health deterioration [Unknown]
  - Petechiae [Not Recovered/Not Resolved]
  - Terminal state [Unknown]
  - Investigation abnormal [Unknown]
  - Platelet count decreased [Not Recovered/Not Resolved]
